FAERS Safety Report 4910996-7 (Version None)
Quarter: 2006Q1

REPORT INFORMATION
  Report Type: 
  Country: None (occurrence: None)
  Receive Date: 20060209
  Receipt Date: 20060131
  Transmission Date: 20060701
  Serious: Yes (Hospitalization)
  Sender: FDA-Public Use
  Company Number: 2005137807

PATIENT
  Age: 43 Year
  Sex: Female

DRUGS (4)
  1. CABERGOLINE [Suspect]
     Indication: RESTLESS LEGS SYNDROME
     Dosage: 1 TABLET (DAILY), ORAL
     Route: 048
     Dates: start: 20050901, end: 20050901
  2. LEVOTHYROXINE SODIUM [Concomitant]
  3. IODINE (IODINE) [Concomitant]
  4. QUININE SULFATE [Concomitant]

REACTIONS (4)
  - DIZZINESS [None]
  - NAUSEA [None]
  - TINNITUS [None]
  - VISUAL DISTURBANCE [None]
